FAERS Safety Report 21919790 (Version 1)
Quarter: 2023Q1

REPORT INFORMATION
  Report Type: Spontaneous
  Country: DE (occurrence: DE)
  Receive Date: 20230127
  Receipt Date: 20230127
  Transmission Date: 20230417
  Serious: Yes (Other)
  Sender: FDA-Public Use
  Company Number: None

PATIENT
  Age: 3 Day
  Sex: Female
  Weight: 2 kg

DRUGS (3)
  1. METOPROLOL [Suspect]
     Active Substance: METOPROLOL
     Indication: Hypertension
     Dosage: 47.5 [MG/D ]
     Route: 064
     Dates: start: 20210621, end: 20220310
  2. VENLAFAXINE [Suspect]
     Active Substance: VENLAFAXINE HYDROCHLORIDE
     Indication: Borderline personality disorder
     Dosage: 37.5 [MG/D ]
     Route: 064
     Dates: start: 20210621, end: 20220310
  3. ASPIRIN [Concomitant]
     Active Substance: ASPIRIN
     Indication: Prophylaxis
     Dosage: 150 [MG/D ]
     Route: 064

REACTIONS (5)
  - Foetal exposure during pregnancy [Unknown]
  - Infantile apnoea [Recovered/Resolved]
  - Bradycardia neonatal [Recovered/Resolved]
  - Brief resolved unexplained event [Recovered/Resolved]
  - Cyanosis neonatal [Recovered/Resolved]
